FAERS Safety Report 8821807 (Version 1)
Quarter: 2012Q4

REPORT INFORMATION
  Report Type: 
  Country: US (occurrence: US)
  Receive Date: 20121002
  Receipt Date: 20121002
  Transmission Date: 20130627
  Serious: No
  Sender: FDA-Public Use
  Company Number: US-VERTEX PHARMACEUTICAL INC.-2012-020702

PATIENT
  Sex: Female
  Weight: 66.2 kg

DRUGS (16)
  1. VX-950 [Suspect]
     Indication: HEPATITIS C
     Dosage: 750 mg, tid
     Route: 048
     Dates: start: 2012
  2. PEGASYS [Concomitant]
     Indication: HEPATITIS C
     Dosage: 180 ?g, UNK
     Route: 058
     Dates: start: 2012
  3. RIBASPHERE [Concomitant]
     Indication: HEPATITIS C
     Dosage: 1000 mg, qd
     Dates: start: 2012
  4. ZANTAC [Concomitant]
     Dosage: 150 mg, bid
  5. DOXEPIN [Concomitant]
     Dosage: 10 mg, qd
  6. SYNTHROID [Concomitant]
     Dosage: 75 ?g, qd
  7. ASPIRIN [Concomitant]
     Dosage: 81 mg, prn
  8. MAGNESIUM OXIDE [Concomitant]
     Dosage: 400 mg, UNK
  9. BLACK COHOSH HOT FLASH [Concomitant]
  10. COQ-10 [Concomitant]
  11. FISH OIL [Concomitant]
  12. VITAMIN D1 [Concomitant]
  13. FLAXSEED OIL [Concomitant]
  14. VITAMIN C                          /00008001/ [Concomitant]
  15. VITAMIN E                          /00110501/ [Concomitant]
  16. MILK THISTLE [Concomitant]

REACTIONS (1)
  - Depression [Unknown]
